FAERS Safety Report 24011633 (Version 1)
Quarter: 2024Q2

REPORT INFORMATION
  Report Type: Spontaneous
  Country: US (occurrence: None)
  Receive Date: 20240625
  Receipt Date: 20240625
  Transmission Date: 20240716
  Serious: No
  Sender: FDA-Public Use
  Company Number: None

PATIENT
  Age: 47 Year
  Sex: Female
  Weight: 66.15 kg

DRUGS (1)
  1. BANANA BOAT NOS [Suspect]
     Active Substance: AVOBENZONE\HOMOSALATE\OCTINOXATE\OCTISALATE\OCTOCRYLENE\OXYBENZONE\TITANIUM DIOXIDE\ZINC OXIDE
     Indication: Prophylaxis against solar radiation
     Dosage: OTHER STRENGTH : NA;?OTHER QUANTITY : 1 SPRAY(S);?OTHER FREQUENCY : DAY;?
     Route: 061
     Dates: end: 20240623

REACTIONS (4)
  - Burns second degree [None]
  - Application site pain [None]
  - Application site swelling [None]
  - Application site vesicles [None]

NARRATIVE: CASE EVENT DATE: 20040623
